FAERS Safety Report 17552875 (Version 1)
Quarter: 2020Q1

REPORT INFORMATION
  Report Type: Report from Study
  Country: US (occurrence: US)
  Receive Date: 20200317
  Receipt Date: 20200317
  Transmission Date: 20200409
  Serious: Yes (Hospitalization)
  Sender: FDA-Public Use
  Company Number: US-GILEAD-2020-0455324

PATIENT
  Age: 42 Year
  Sex: Female

DRUGS (30)
  1. AZTREONAM LYSINE [Suspect]
     Active Substance: AZTREONAM LYSINE
     Indication: PRODUCT USED FOR UNKNOWN INDICATION
     Dosage: 75 MG, TID 28 DAYS ON AND 28 DAYS OFF
     Route: 055
     Dates: start: 20190418
  2. HYDROXYZINE HYDROCHLORIDE. [Concomitant]
     Active Substance: HYDROXYZINE HYDROCHLORIDE
  3. BUDESONIDE. [Concomitant]
     Active Substance: BUDESONIDE
  4. OMEPRAZOLE. [Concomitant]
     Active Substance: OMEPRAZOLE
  5. CARNITOR [Concomitant]
     Active Substance: LEVOCARNITINE
  6. ERGOCALCIFEROL. [Concomitant]
     Active Substance: ERGOCALCIFEROL
  7. LEUCOVORIN CALCIUM. [Concomitant]
     Active Substance: LEUCOVORIN CALCIUM
  8. LOVENOX [LEVOFLOXACIN] [Concomitant]
     Active Substance: LEVOFLOXACIN
  9. ZOFRAN [Concomitant]
     Active Substance: ONDANSETRON HYDROCHLORIDE
  10. ABILIFY [Concomitant]
     Active Substance: ARIPIPRAZOLE
  11. BACLOFEN. [Concomitant]
     Active Substance: BACLOFEN
  12. MULTIVITAMINS PLUS IRON [Concomitant]
     Active Substance: IRON\VITAMINS
  13. NOVOLIN R [Concomitant]
     Active Substance: INSULIN HUMAN
  14. CLONIDINE HYDROCHLORIDE. [Concomitant]
     Active Substance: CLONIDINE HYDROCHLORIDE
  15. ALBUTEROL SULFATE. [Concomitant]
     Active Substance: ALBUTEROL SULFATE
  16. XYZAL [Concomitant]
     Active Substance: LEVOCETIRIZINE DIHYDROCHLORIDE
  17. VANCOMYCIN HYDROCHLORIDE. [Concomitant]
     Active Substance: VANCOMYCIN HYDROCHLORIDE
  18. ZETIA [Concomitant]
     Active Substance: EZETIMIBE
  19. HUMALOG [Concomitant]
     Active Substance: INSULIN LISPRO
  20. QUETIAPINE FUMARATE. [Concomitant]
     Active Substance: QUETIAPINE FUMARATE
  21. NORTRIPTYLINE HYDROCHLORIDE. [Concomitant]
     Active Substance: NORTRIPTYLINE HYDROCHLORIDE
  22. FLUCONAZOLE. [Concomitant]
     Active Substance: FLUCONAZOLE
  23. LORAZEPAM. [Concomitant]
     Active Substance: LORAZEPAM
  24. MIDODRINE HYDROCHLORIDE. [Concomitant]
     Active Substance: MIDODRINE HYDROCHLORIDE
  25. DONEPEZIL HYDROCHLORIDE. [Concomitant]
     Active Substance: DONEPEZIL HYDROCHLORIDE
  26. NYSTATIN. [Concomitant]
     Active Substance: NYSTATIN
  27. AZELAIC ACID. [Concomitant]
     Active Substance: AZELAIC ACID
  28. DULOXETINE HYDROCHLORIDE. [Concomitant]
     Active Substance: DULOXETINE HYDROCHLORIDE
  29. TRAZODONE HYDROCHLORIDE. [Concomitant]
     Active Substance: TRAZODONE HYDROCHLORIDE
  30. BROVANA [Concomitant]
     Active Substance: ARFORMOTEROL TARTRATE

REACTIONS (3)
  - Feeding tube user [Not Recovered/Not Resolved]
  - Infection [Not Recovered/Not Resolved]
  - Surgery [Not Recovered/Not Resolved]
